FAERS Safety Report 10409416 (Version 1)
Quarter: 2014Q3

REPORT INFORMATION
  Report Type: Spontaneous
  Country: BE (occurrence: None)
  Receive Date: 20140822
  Receipt Date: 20140822
  Transmission Date: 20150326
  Serious: Yes (Hospitalization, Other)
  Sender: FDA-Public Use
  Company Number: 2014COV00092

PATIENT
  Age: 72 Year
  Sex: Male

DRUGS (10)
  1. ALLOPURINOL (ALLOPURINOL) [Suspect]
     Active Substance: ALLOPURINOL
  2. NIFURTOINOL (NIFURTOINOL) [Concomitant]
  3. WARFARIN SODIUM (WARFARIN SODIUM) [Concomitant]
     Active Substance: WARFARIN SODIUM
  4. DIGOXIN (DIGOXIN) [Suspect]
     Active Substance: DIGOXIN
  5. LISINOPRIL AND HYDROCHLOROTHIAZIDE (LISINOPRIL AND HYDROCHLOROTHIAZIDE) [Concomitant]
  6. METFORMIN HYDROCHLORIDE (METFORMIN HYDROCHLORIDE) [Suspect]
     Active Substance: METFORMIN HYDROCHLORIDE
  7. GLIQUIDONE (GLIQUIDINE) [Concomitant]
  8. MOXONIDINE (MOXONIDINE) [Concomitant]
     Active Substance: MOXONIDINE
  9. SIMVASTATIN (SIMVASTATIN) [Concomitant]
     Active Substance: SIMVASTATIN
  10. BISOPROLOL AND HYDROCHLOROTHIAZIDE (BISOPROLOL AND HYDROCHLOROTHIAZID) [Concomitant]

REACTIONS (23)
  - Toxicity to various agents [None]
  - Fatigue [None]
  - Hypotension [None]
  - Metabolic acidosis [None]
  - Dyspnoea [None]
  - Renal failure acute [None]
  - Electrocardiogram repolarisation abnormality [None]
  - Tachypnoea [None]
  - Cardiomegaly [None]
  - Abdominal pain [None]
  - Respiratory depression [None]
  - Ascites [None]
  - Drug interaction [None]
  - Amylase increased [None]
  - Diarrhoea [None]
  - Haemodialysis [None]
  - Atrial fibrillation [None]
  - Ventricular fibrillation [None]
  - Pleural effusion [None]
  - Lipase increased [None]
  - Decreased appetite [None]
  - Polyuria [None]
  - Hyperventilation [None]
